FAERS Safety Report 15879265 (Version 1)
Quarter: 2019Q1

REPORT INFORMATION
  Report Type: Spontaneous
  Country: US (occurrence: US)
  Receive Date: 20190128
  Receipt Date: 20190128
  Transmission Date: 20190417
  Serious: No
  Sender: FDA-Public Use
  Company Number: US-MYLANLABS-2019M1003555

PATIENT
  Sex: Female
  Weight: 54 kg

DRUGS (2)
  1. XULANE [Suspect]
     Active Substance: ETHINYL ESTRADIOL\NORELGESTROMIN
     Indication: MENORRHAGIA
     Dosage: 150/35 MICROGRAM PER DAY
     Route: 062
  2. XULANE [Suspect]
     Active Substance: ETHINYL ESTRADIOL\NORELGESTROMIN
     Dosage: 150/35 MICROGRAM PER DAY
     Route: 062

REACTIONS (4)
  - Product use in unapproved indication [Unknown]
  - Skin reaction [Unknown]
  - Wrong technique in product usage process [Unknown]
  - Product adhesion issue [Unknown]
